FAERS Safety Report 5699732-7 (Version None)
Quarter: 2008Q2

REPORT INFORMATION
  Report Type: 
  Country: None (occurrence: None)
  Receive Date: 20080410
  Receipt Date: 20080402
  Transmission Date: 20081010
  Serious: Yes (Other)
  Sender: FDA-Public Use
  Company Number: PHEH2008US03385

PATIENT
  Age: 67 Year
  Sex: Male
  Weight: 68.027 kg

DRUGS (1)
  1. ZOMETA [Suspect]
     Indication: METASTASES TO BONE
     Dosage: 4 MG EVERY 4 WEEKS
     Dates: start: 20070301, end: 20080306

REACTIONS (4)
  - MASTICATION DISORDER [None]
  - NEOPLASM MALIGNANT [None]
  - OSTEONECROSIS [None]
  - TOOTHACHE [None]
